FAERS Safety Report 20578712 (Version 1)
Quarter: 2022Q1

REPORT INFORMATION
  Report Type: Spontaneous
  Country: GB (occurrence: None)
  Receive Date: 20220310
  Receipt Date: 20220310
  Transmission Date: 20220423
  Serious: Yes (unspecified)
  Sender: FDA-Public Use
  Company Number: None

PATIENT
  Age: 62 Year
  Sex: Female

DRUGS (1)
  1. DOXEPIN [Suspect]
     Active Substance: DOXEPIN
     Indication: Insomnia

REACTIONS (6)
  - Serotonin syndrome [None]
  - Hyperhidrosis [None]
  - Nausea [None]
  - Dysarthria [None]
  - Gait inability [None]
  - Drug interaction [None]

NARRATIVE: CASE EVENT DATE: 20210901
